FAERS Safety Report 8726276 (Version 9)
Quarter: 2014Q1

REPORT INFORMATION
  Report Type: Spontaneous
  Country: US (occurrence: US)
  Receive Date: 20120816
  Receipt Date: 20140327
  Transmission Date: 20141002
  Serious: Yes (Other)
  Sender: FDA-Public Use
  Company Number: PHEH2012US015912

PATIENT
  Sex: Female

DRUGS (4)
  1. ZOMETA [Suspect]
     Dosage: 1 MG,
     Dates: start: 20070403, end: 20110418
  2. FEMARA [Concomitant]
     Dosage: 2.5 MG, QD
  3. EFFEXOR [Concomitant]
  4. PAXIL [Concomitant]

REACTIONS (32)
  - Osteonecrosis of jaw [Unknown]
  - Injury [Unknown]
  - Axillary mass [Unknown]
  - Colitis [Unknown]
  - Epigastric discomfort [Unknown]
  - Lip and/or oral cavity cancer [Unknown]
  - Abdominal mass [Unknown]
  - Abdominal distension [Unknown]
  - Abdominal hernia [Unknown]
  - Osteoporosis [Unknown]
  - Cholecystitis [Unknown]
  - Urinary tract infection [Unknown]
  - Hyperglycaemia [Unknown]
  - Bronchitis [Unknown]
  - Depression [Unknown]
  - Upper respiratory tract infection [Unknown]
  - Sinusitis [Unknown]
  - Rhinitis allergic [Unknown]
  - Uterine leiomyoma [Unknown]
  - Asthma [Unknown]
  - Haemorrhoids [Unknown]
  - Pollakiuria [Unknown]
  - Colitis microscopic [Unknown]
  - Gallbladder polyp [Unknown]
  - Umbilical erythema [Unknown]
  - Dyspnoea [Unknown]
  - Diarrhoea [Unknown]
  - Arthralgia [Unknown]
  - Weight increased [Unknown]
  - Nausea [Unknown]
  - Weight decreased [Unknown]
  - Fatigue [Unknown]
